FAERS Safety Report 7691617-X (Version None)
Quarter: 2011Q3

REPORT INFORMATION
  Report Type: 
  Country: None (occurrence: None)
  Receive Date: 20110818
  Receipt Date: 20110817
  Transmission Date: 20111222
  Serious: Yes (Other)
  Sender: FDA-Public Use
  Company Number: CHPA2011US10976

PATIENT
  Age: 79 Year
  Sex: Female

DRUGS (2)
  1. EXCEDRIN (MIGRAINE) [Suspect]
     Indication: MYALGIA
  2. EXCEDRIN (MIGRAINE) [Suspect]
     Indication: PAIN IN EXTREMITY
     Dosage: 2 DF, BID
     Route: 048
     Dates: start: 20110810, end: 20110810

REACTIONS (3)
  - DIZZINESS [None]
  - NAUSEA [None]
  - SYNCOPE [None]
